FAERS Safety Report 6424416-7 (Version None)
Quarter: 2009Q4

REPORT INFORMATION
  Report Type: 
  Country: None (occurrence: None)
  Receive Date: 20091103
  Receipt Date: 20091023
  Transmission Date: 20100525
  Serious: Yes (Death)
  Sender: FDA-Public Use
  Company Number: CA-JNJFOC-20091007961

PATIENT
  Sex: Female
  Weight: 70 kg

DRUGS (3)
  1. REMICADE [Suspect]
     Indication: RHEUMATOID ARTHRITIS
     Dosage: 53 INFUSIONS ADMINISTERED
     Route: 042
  2. METHOTREXATE [Concomitant]
  3. WARFARIN SODIUM [Concomitant]

REACTIONS (2)
  - DEATH [None]
  - LOWER RESPIRATORY TRACT INFECTION [None]
